FAERS Safety Report 8434480-1 (Version None)
Quarter: 2012Q2

REPORT INFORMATION
  Report Type: 
  Country: None (occurrence: None)
  Receive Date: 20120614
  Receipt Date: 20120608
  Transmission Date: 20120825
  Serious: Yes (Hospitalization)
  Sender: FDA-Public Use
  Company Number: US-BIOGENIDEC-2012BI020748

PATIENT
  Age: 48 Year
  Sex: Female

DRUGS (6)
  1. TYSABRI [Suspect]
     Indication: MULTIPLE SCLEROSIS
     Route: 042
     Dates: start: 20050203
  2. TYSABRI [Suspect]
     Route: 042
     Dates: start: 20080423, end: 20081210
  3. AVONEX [Concomitant]
     Indication: MULTIPLE SCLEROSIS
     Route: 030
     Dates: start: 20010426
  4. TYSABRI [Suspect]
     Route: 042
     Dates: start: 20090625, end: 20091104
  5. TYSABRI [Suspect]
     Route: 042
     Dates: start: 20070212, end: 20070601
  6. TYSABRI [Suspect]
     Route: 042
     Dates: start: 20111116

REACTIONS (4)
  - BLADDER DIVERTICULUM [None]
  - MULTIPLE SCLEROSIS RELAPSE [None]
  - KIDNEY INFECTION [None]
  - CYSTITIS [None]
